FAERS Safety Report 8790799 (Version 1)
Quarter: 2012Q4

REPORT INFORMATION
  Report Type: Spontaneous
  Country: US (occurrence: None)
  Receive Date: 20120913
  Receipt Date: 20120913
  Transmission Date: 20130627
  Serious: Yes (Life-Threatening, Other)
  Sender: FDA-Public Use
  Company Number: None

PATIENT
  Age: 62 Year
  Sex: Female
  Weight: 196.86 kg

DRUGS (8)
  1. SILVADENE [Suspect]
     Indication: PRESSURE SORE
     Dosage: Apply to Sores 1 Time Daily
     Dates: start: 20120814
  2. SILVADENE [Suspect]
     Indication: PRESSURE SORE
     Dates: start: 20120815
  3. SILVADENE [Suspect]
     Indication: PRESSURE SORE
     Dates: start: 20120816
  4. SILVADENE [Suspect]
     Indication: PRESSURE SORE
     Dates: start: 20120817
  5. SILVADENE [Suspect]
     Indication: PRESSURE SORE
     Dates: start: 20120818
  6. SILVADENE [Suspect]
     Indication: PRESSURE SORE
     Dates: start: 20120819
  7. SILVADENE [Suspect]
     Indication: PRESSURE SORE
     Dates: start: 20120820
  8. SILVADENE [Suspect]
     Indication: PRESSURE SORE
     Dates: start: 20120821

REACTIONS (4)
  - Band sensation [None]
  - Wheezing [None]
  - Dyspnoea [None]
  - Reaction to drug excipients [None]
